FAERS Safety Report 6480312-0 (Version None)
Quarter: 2009Q4

REPORT INFORMATION
  Report Type: 
  Country: None (occurrence: None)
  Receive Date: 20091202
  Receipt Date: 20091124
  Transmission Date: 20100525
  Serious: Yes (Hospitalization)
  Sender: FDA-Public Use
  Company Number: 2009029305

PATIENT
  Age: 67 Year
  Sex: Female
  Weight: 100.6985 kg

DRUGS (14)
  1. NUVIGIL [Suspect]
     Dosage: ORAL
     Route: 048
     Dates: start: 20090101, end: 20090101
  2. REQUIP XL [Suspect]
  3. NAPROXEN [Concomitant]
  4. MIRAPEX [Suspect]
  5. SINEMET [Concomitant]
  6. LYRICA [Suspect]
  7. OPANA ER [Concomitant]
  8. NEXIUM [Concomitant]
  9. LACTULOSE [Concomitant]
  10. COLCHICINE (COLCHICINE) [Concomitant]
  11. I-PHENYLALANNE (PHENYLALANINE) [Concomitant]
  12. VITAMINS (ERGOCALCIFEROL, ASCORBIC ACID, TOCOPHEROL, FOLIC ACID, RETIN [Concomitant]
  13. TUNA OIL (ALL OTHER THERAPEUTIC PRODUCTS) [Concomitant]
  14. HERBOLOGICAL PROBIOTIC BLEND (PANCREATIN, BROMELAINS, PAPAIN, PEPSIN, [Concomitant]

REACTIONS (4)
  - CHONDROCALCINOSIS PYROPHOSPHATE [None]
  - OEDEMA PERIPHERAL [None]
  - PULMONARY EMBOLISM [None]
  - PULMONARY THROMBOSIS [None]
